FAERS Safety Report 16985461 (Version 1)
Quarter: 2019Q4

REPORT INFORMATION
  Report Type: Spontaneous
  Country: US (occurrence: US)
  Receive Date: 20191101
  Receipt Date: 20191101
  Transmission Date: 20200122
  Serious: Yes (Other)
  Sender: FDA-Public Use
  Company Number: US-TEVA-2019-US-1129770

PATIENT
  Sex: Female

DRUGS (1)
  1. COPAXONE [Suspect]
     Active Substance: GLATIRAMER ACETATE
     Dosage: FORM STRENGTH:  UNKNOWN
     Route: 065

REACTIONS (5)
  - Migraine [Unknown]
  - Skin haemorrhage [Unknown]
  - Headache [Unknown]
  - Pruritus [Unknown]
  - Multiple sclerosis relapse [Unknown]
